FAERS Safety Report 9839822 (Version 1)
Quarter: 2014Q1

REPORT INFORMATION
  Report Type: Spontaneous
  Country: GB (occurrence: GB)
  Receive Date: 20140124
  Receipt Date: 20140124
  Transmission Date: 20141002
  Serious: Yes (Death)
  Sender: FDA-Public Use
  Company Number: GB-BRISTOL-MYERS SQUIBB COMPANY-20048187

PATIENT
  Age: 61 Year
  Sex: Male

DRUGS (1)
  1. ELIQUIS [Suspect]

REACTIONS (1)
  - Cerebrovascular accident [Fatal]
